FAERS Safety Report 4784278-0 (Version None)
Quarter: 2005Q3

REPORT INFORMATION
  Report Type: 
  Country: None (occurrence: None)
  Receive Date: 20050930
  Receipt Date: 20050906
  Transmission Date: 20060218
  Serious: Yes (Hospitalization)
  Sender: FDA-Public Use
  Company Number: GBWYE957306SEP05

PATIENT
  Sex: Female

DRUGS (8)
  1. ENBREL [Suspect]
     Indication: RHEUMATOID ARTHRITIS
     Route: 058
     Dates: start: 20040710
  2. HUMALOG [Concomitant]
  3. IBUPROFEN [Concomitant]
  4. DIHYDROCODEINE [Concomitant]
  5. OMEPRAZOLE [Concomitant]
  6. PARACETAMOL [Concomitant]
  7. NABUMETONE [Concomitant]
  8. SIMVASTATIN [Concomitant]

REACTIONS (4)
  - INJECTION SITE URTICARIA [None]
  - PRURITUS [None]
  - SKIN LESION [None]
  - URTICARIA [None]
